FAERS Safety Report 15000164 (Version 2)
Quarter: 2018Q3

REPORT INFORMATION
  Report Type: Spontaneous
  Country: GB (occurrence: GB)
  Receive Date: 20180612
  Receipt Date: 20180713
  Transmission Date: 20181010
  Serious: Yes (Death, Hospitalization)
  Sender: FDA-Public Use
  Company Number: GB-ASTRAZENECA-2018SE73823

PATIENT
  Age: 65 Year
  Sex: Male
  Weight: 121 kg

DRUGS (9)
  1. BYDUREON [Suspect]
     Active Substance: EXENATIDE
     Indication: DIABETES MELLITUS
     Route: 065
     Dates: start: 20130815, end: 20170707
  2. VENTOLIN [Concomitant]
     Active Substance: ALBUTEROL SULFATE
  3. ASPIRIN. [Concomitant]
     Active Substance: ASPIRIN
  4. BYDUREON [Suspect]
     Active Substance: EXENATIDE
     Indication: DIABETES MELLITUS
     Route: 065
  5. FUROSEMIDE. [Concomitant]
     Active Substance: FUROSEMIDE
     Dosage: 40MG TABLETS? 112 TABLET? 2 MANE AND 2 NOON
  6. SODIUM CROMOGLICATE [Concomitant]
     Active Substance: CROMOLYN SODIUM
  7. LACTULOSE. [Concomitant]
     Active Substance: LACTULOSE
     Dosage: 3.1?3.7G/5ML ORAL SOLUTION ? 500 ML ? 15MI TWICE DAILY
  8. BETAMETHASONE VALERATE. [Concomitant]
     Active Substance: BETAMETHASONE VALERATE
  9. SPIRONOLACTONE. [Concomitant]
     Active Substance: SPIRONOLACTONE

REACTIONS (25)
  - Non-alcoholic steatohepatitis [Fatal]
  - Hepatorenal syndrome [Fatal]
  - Lower respiratory tract infection [Unknown]
  - Hepatic hydrothorax [Fatal]
  - Cardiac failure [Fatal]
  - Asthma [Unknown]
  - Cataract [Unknown]
  - Staphylococcal bacteraemia [Fatal]
  - Cardiac disorder [Unknown]
  - Fluid retention [Unknown]
  - Pleural effusion [Unknown]
  - Lichen sclerosus [Unknown]
  - Hydrothorax [Unknown]
  - Hepatic cirrhosis [Fatal]
  - Urinary tract infection [Unknown]
  - Osteopenia [Unknown]
  - Peripheral swelling [Unknown]
  - Constipation [Unknown]
  - Nosocomial infection [Fatal]
  - Intervertebral discitis [Fatal]
  - Cerebrovascular disorder [Unknown]
  - Inguinal hernia [Unknown]
  - Phimosis [Unknown]
  - Respiratory tract infection [Unknown]
  - Insomnia [Unknown]

NARRATIVE: CASE EVENT DATE: 20170701
